FAERS Safety Report 12783367 (Version 2)
Quarter: 2016Q4

REPORT INFORMATION
  Report Type: Report from Study
  Country: JP (occurrence: JP)
  Receive Date: 20160927
  Receipt Date: 20161018
  Transmission Date: 20170207
  Serious: Yes (Death, Other)
  Sender: FDA-Public Use
  Company Number: JP-UCBSA-2015029740

PATIENT
  Age: 79 Year
  Sex: Male
  Weight: 55.5 kg

DRUGS (21)
  1. PILSICAINIDE HYDROCHLORIDE [Concomitant]
     Active Substance: PILSICAINIDE HYDROCHLORIDE
     Indication: PRODUCT USED FOR UNKNOWN INDICATION
     Dosage: DAILY DOSE OF 100 MG
     Route: 048
     Dates: start: 20150513, end: 20160604
  2. FUROSEMIDE. [Concomitant]
     Active Substance: FUROSEMIDE
     Indication: PRODUCT USED FOR UNKNOWN INDICATION
     Dosage: 10MG
     Dates: end: 201603
  3. MIYA-BM [Concomitant]
     Active Substance: CLOSTRIDIUM BUTYRICUM SPORES STRAIN M-55
     Indication: PRODUCT USED FOR UNKNOWN INDICATION
     Dosage: DAILY DOSE OF 60 MG
     Route: 048
     Dates: start: 20141004, end: 20141004
  4. MAINTATE [Concomitant]
     Active Substance: BISOPROLOL FUMARATE
     Indication: PRODUCT USED FOR UNKNOWN INDICATION
     Dosage: DAILY DOSE OF 1.25 MG
     Route: 048
     Dates: end: 20160604
  5. DEPAKENE [Concomitant]
     Active Substance: VALPROIC ACID
     Indication: PARTIAL SEIZURES WITH SECONDARY GENERALISATION
     Dosage: 16 ML, DAILY
     Route: 048
     Dates: end: 20150610
  6. ALEVIATIN [Concomitant]
     Active Substance: PHENYTOIN SODIUM
     Indication: PARTIAL SEIZURES WITH SECONDARY GENERALISATION
     Dosage: 250MG, DAILY
     Route: 041
     Dates: end: 20140918
  7. LEVETIRACETAM. [Suspect]
     Active Substance: LEVETIRACETAM
     Indication: PARTIAL SEIZURES WITH SECONDARY GENERALISATION
     Dosage: 500 MG, 2X/DAY (BID)
     Route: 048
     Dates: start: 20140930, end: 20160604
  8. VALERIN [Concomitant]
     Active Substance: VALPROATE SODIUM
     Dosage: DAILY DOSE OF 20 ML
     Route: 048
     Dates: start: 20160325, end: 20160604
  9. ISOZOL [Concomitant]
     Active Substance: THIAMYLAL SODIUM
     Dosage: 1G, DAILY
     Route: 041
     Dates: start: 20141001, end: 20141001
  10. VALERIN [Concomitant]
     Active Substance: VALPROATE SODIUM
     Indication: PARTIAL SEIZURES WITH SECONDARY GENERALISATION
     Dosage: DAILY DOSE OF 16 ML
     Route: 048
     Dates: start: 20150611, end: 20160324
  11. ASPARA POTASSIUM [Concomitant]
     Active Substance: POTASSIUM ASPARTATE
     Indication: PRODUCT USED FOR UNKNOWN INDICATION
     Dosage: DAILY DOSE OF 2 G
     Route: 048
     Dates: end: 20160604
  12. CARBOCISTEINE [Concomitant]
     Active Substance: CARBOCYSTEINE
     Indication: PRODUCT USED FOR UNKNOWN INDICATION
     Dosage: DAILY DOSE OF 30 ML
     Route: 048
     Dates: end: 20160604
  13. HORIZON [Concomitant]
     Active Substance: DIAZEPAM
     Indication: PARTIAL SEIZURES WITH SECONDARY GENERALISATION
     Dosage: 30 MG, DAILY
     Route: 041
     Dates: end: 20140918
  14. ISOZOL [Concomitant]
     Active Substance: THIAMYLAL SODIUM
     Indication: STATUS EPILEPTICUS
     Dosage: 0.5 G, DAILY
     Route: 041
     Dates: end: 20140918
  15. ALEVIATIN [Concomitant]
     Active Substance: PHENYTOIN SODIUM
     Dosage: 250MG, DAILY
     Route: 041
     Dates: start: 20150107, end: 20150107
  16. ISOZOL [Concomitant]
     Active Substance: THIAMYLAL SODIUM
     Dosage: 3.5G, DAILY
     Route: 041
     Dates: start: 20140930, end: 20140930
  17. ISOZOL [Concomitant]
     Active Substance: THIAMYLAL SODIUM
     Dosage: 3 G, DAILY
     Route: 041
     Dates: start: 20141002, end: 20141002
  18. DIART [Concomitant]
     Active Substance: AZOSEMIDE
     Indication: PRODUCT USED FOR UNKNOWN INDICATION
     Dosage: 30 MG, DAILY
     Route: 048
     Dates: start: 20160319, end: 20160604
  19. LANSOPRAZOLE. [Concomitant]
     Active Substance: LANSOPRAZOLE
     Indication: PRODUCT USED FOR UNKNOWN INDICATION
     Dosage: DAILY DOSE OF 15 MG
     Route: 048
     Dates: end: 20160604
  20. WARFARIN [Concomitant]
     Active Substance: WARFARIN
     Indication: PRODUCT USED FOR UNKNOWN INDICATION
     Dosage: DAILY DOSE OF 0.5 MG
     Route: 048
     Dates: start: 20150731, end: 20160604
  21. SODIUM CHLORIDE. [Concomitant]
     Active Substance: SODIUM CHLORIDE
     Indication: PRODUCT USED FOR UNKNOWN INDICATION
     Dosage: UNK
     Dates: start: 20150807, end: 20160604

REACTIONS (7)
  - Hypoalbuminaemia [Not Recovered/Not Resolved]
  - Anaemia [Recovered/Resolved]
  - Cardiac failure [Fatal]
  - Dysphagia [Not Recovered/Not Resolved]
  - Respiratory failure [Recovering/Resolving]
  - Hyponatraemia [Recovered/Resolved]
  - Pleural effusion [Recovering/Resolving]

NARRATIVE: CASE EVENT DATE: 20150329
